FAERS Safety Report 13982124 (Version 1)
Quarter: 2017Q3

REPORT INFORMATION
  Report Type: Report from Study
  Country: CA (occurrence: CA)
  Receive Date: 20170918
  Receipt Date: 20170918
  Transmission Date: 20171128
  Serious: Yes (Other)
  Sender: FDA-Public Use
  Company Number: PHHY2016CA070862

PATIENT
  Age: 45 Year
  Sex: Female

DRUGS (6)
  1. COSENTYX [Suspect]
     Active Substance: SECUKINUMAB
     Indication: PSORIASIS
     Dosage: 300 MG, QW
     Route: 058
     Dates: start: 20160518, end: 20160608
  2. PSORALEN [Concomitant]
     Active Substance: PSORALEN
     Indication: PRODUCT USED FOR UNKNOWN INDICATION
     Route: 065
  3. COSENTYX [Suspect]
     Active Substance: SECUKINUMAB
     Dosage: 300 MG, QMO
     Route: 058
     Dates: start: 20160615
  4. COSENTYX [Suspect]
     Active Substance: SECUKINUMAB
     Dosage: 300 MG, QMO
     Route: 058
     Dates: start: 20170815
  5. ACITRETIN. [Concomitant]
     Active Substance: ACITRETIN
     Indication: PRODUCT USED FOR UNKNOWN INDICATION
     Route: 065
  6. NEORAL [Suspect]
     Active Substance: CYCLOSPORINE
     Indication: PRODUCT USED FOR UNKNOWN INDICATION
     Route: 065

REACTIONS (11)
  - Choking [Unknown]
  - Dry throat [Unknown]
  - Sinusitis [Unknown]
  - Blood potassium increased [Unknown]
  - Rhinorrhoea [Unknown]
  - Blood pressure decreased [Unknown]
  - Contusion [Unknown]
  - Nasopharyngitis [Unknown]
  - Productive cough [Unknown]
  - Renal disorder [Unknown]
  - Streptococcal infection [Recovered/Resolved]

NARRATIVE: CASE EVENT DATE: 2016
